FAERS Safety Report 5331042-X (Version None)
Quarter: 2007Q2

REPORT INFORMATION
  Report Type: 
  Country: None (occurrence: None)
  Receive Date: 20070522
  Receipt Date: 20070518
  Transmission Date: 20071010
  Serious: Yes (Other)
  Sender: FDA-Public Use
  Company Number: A0652004A

PATIENT
  Age: 61 Year
  Sex: Female

DRUGS (4)
  1. AROPAX [Suspect]
     Indication: DEPRESSION
     Dosage: 20MG PER DAY
     Route: 048
     Dates: start: 20060801
  2. DEXAMETHASONE 0.5MG TAB [Concomitant]
     Indication: INFLAMMATION
     Route: 042
  3. BETAMETHASONE [Concomitant]
     Indication: INFLAMMATION
     Route: 042
  4. TEGASEROD [Concomitant]
     Indication: COLITIS
     Route: 048

REACTIONS (3)
  - COLITIS [None]
  - CONDITION AGGRAVATED [None]
  - FIBROMYALGIA [None]
